FAERS Safety Report 8456517-6 (Version None)
Quarter: 2012Q2

REPORT INFORMATION
  Report Type: 
  Country: None (occurrence: None)
  Receive Date: 20120621
  Receipt Date: 20120614
  Transmission Date: 20120825
  Serious: Yes (Hospitalization)
  Sender: FDA-Public Use
  Company Number: GB-BRISTOL-MYERS SQUIBB COMPANY-16185530

PATIENT
  Age: 67 Year
  Sex: Male

DRUGS (11)
  1. DIGOXIN [Concomitant]
     Dates: start: 20110509
  2. PREDNISOLONE [Concomitant]
     Dates: start: 20110714
  3. ALLOPURINOL [Suspect]
     Dates: start: 20110826, end: 20110919
  4. BLINDED: SAXAGLIPTIN [Suspect]
     Indication: TYPE 2 DIABETES MELLITUS
     Dosage: INTER ON 10FEB11,RESTARTED ON 3MAR11, INTER ON 27SEP11
     Dates: start: 20100805
  5. ASPIRIN [Concomitant]
     Dosage: 1DF:{100MG
  6. NITRATES [Concomitant]
  7. CODEINE PHOSPHATE [Concomitant]
     Dates: start: 20110627
  8. PLACEBO [Suspect]
     Indication: TYPE 2 DIABETES MELLITUS
     Dosage: INTER ON 10FEB11,RESTARTED ON 3MAR11, INTER ON 27SEP11
     Dates: start: 20100805
  9. ACETAMINOPHEN [Concomitant]
     Dates: start: 20110627
  10. GLICLAZIDE [Suspect]
     Indication: DIABETES MELLITUS
     Dates: start: 20110723
  11. CHLORPHENAMINE [Concomitant]
     Dates: start: 20110919

REACTIONS (11)
  - STEVENS-JOHNSON SYNDROME [None]
  - CONTINUOUS HAEMODIAFILTRATION [None]
  - POLYDIPSIA [None]
  - POLYURIA [None]
  - RENAL FAILURE ACUTE [None]
  - TOXIC EPIDERMAL NECROLYSIS [None]
  - DEHYDRATION [None]
  - HEART RATE INCREASED [None]
  - INTERNATIONAL NORMALISED RATIO INCREASED [None]
  - BLOOD PRESSURE DECREASED [None]
  - RESPIRATORY DISORDER [None]
